FAERS Safety Report 10336543 (Version 1)
Quarter: 2014Q3

REPORT INFORMATION
  Report Type: Spontaneous
  Country: US (occurrence: US)
  Receive Date: 20140723
  Receipt Date: 20140723
  Transmission Date: 20150326
  Serious: No
  Sender: FDA-Public Use
  Company Number: US-BRISTOL-MYERS SQUIBB COMPANY-20286951

PATIENT
  Age: 64 Year
  Sex: Female

DRUGS (2)
  1. ATENOLOL. [Concomitant]
     Active Substance: ATENOLOL
  2. COUMADIN [Suspect]
     Active Substance: WARFARIN SODIUM
     Dosage: 1DF:2.5MG AND 7.5MG

REACTIONS (1)
  - International normalised ratio decreased [Unknown]
